FAERS Safety Report 5947620-0 (Version None)
Quarter: 2008Q4

REPORT INFORMATION
  Report Type: 
  Country: None (occurrence: None)
  Receive Date: 20081107
  Receipt Date: 20081024
  Transmission Date: 20090506
  Serious: Yes (Other)
  Sender: FDA-Public Use
  Company Number: SPV1-2008-02312

PATIENT
  Age: 36 Year
  Sex: Female
  Weight: 80.3 kg

DRUGS (2)
  1. ADDERALL 15 [Suspect]
     Indication: FATIGUE
     Dosage: 30 MG, 1X/DAY;QD,ORAL
     Route: 048
     Dates: end: 20081001
  2. ADDERALL 15 [Suspect]
     Indication: NARCOLEPSY
     Dosage: 30 MG, 1X/DAY;QD,ORAL
     Route: 048
     Dates: end: 20081001

REACTIONS (7)
  - HEADACHE [None]
  - HYPOAESTHESIA [None]
  - MUSCULOSKELETAL STIFFNESS [None]
  - OFF LABEL USE [None]
  - OVERDOSE [None]
  - SCHIZOPHRENIA [None]
  - TIC [None]
